FAERS Safety Report 6119573-6 (Version None)
Quarter: 2009Q1

REPORT INFORMATION
  Report Type: 
  Country: None (occurrence: None)
  Receive Date: 20090316
  Receipt Date: 20090313
  Transmission Date: 20090719
  Serious: Yes (Hospitalization)
  Sender: FDA-Public Use
  Company Number: B0564946A

PATIENT
  Age: 87 Year
  Sex: Male
  Weight: 66.4 kg

DRUGS (7)
  1. ROSIGLITAZONE [Suspect]
     Dosage: 4MG PER DAY
     Route: 048
  2. ADCAL [Concomitant]
     Indication: OSTEOPOROSIS
     Dosage: 2 PER DAY
     Route: 048
  3. LANSOPRAZOLE [Concomitant]
     Dosage: 30MG PER DAY
     Route: 048
     Dates: start: 20081001
  4. ATORVASTATIN [Concomitant]
     Indication: BLOOD CHOLESTEROL INCREASED
     Dosage: 20MG PER DAY
     Route: 048
  5. CITALOPRAM HYDROBROMIDE [Concomitant]
     Indication: DEPRESSION
     Dosage: 20MG PER DAY
     Route: 048
  6. FOLIC ACID [Concomitant]
     Dosage: 5MG PER DAY
  7. ASCORBIC ACID [Concomitant]
     Dosage: 300MG PER DAY

REACTIONS (5)
  - ACUTE CORONARY SYNDROME [None]
  - CHEST PAIN [None]
  - COLD SWEAT [None]
  - HYPERHIDROSIS [None]
  - PALLOR [None]
